FAERS Safety Report 19072231 (Version 2)
Quarter: 2021Q2

REPORT INFORMATION
  Report Type: Spontaneous
  Country: JP (occurrence: JP)
  Receive Date: 20210330
  Receipt Date: 20210405
  Transmission Date: 20210717
  Serious: Yes (Death, Hospitalization)
  Sender: FDA-Public Use
  Company Number: JP-CELGENEUS-JPN-20210307229

PATIENT
  Age: 66 Year
  Sex: Male
  Weight: 54.7 kg

DRUGS (8)
  1. GLACTIV [Concomitant]
     Active Substance: SITAGLIPTIN
     Indication: DIABETES MELLITUS
     Dosage: 50 MILLIGRAM
     Route: 048
     Dates: end: 20210112
  2. NEXIUM [Concomitant]
     Active Substance: ESOMEPRAZOLE MAGNESIUM
     Indication: LUNG CANCER METASTATIC
     Dosage: 20 MILLIGRAM
     Route: 048
     Dates: start: 20210108, end: 20210110
  3. KEYTRUDA [Suspect]
     Active Substance: PEMBROLIZUMAB
     Indication: LUNG CANCER METASTATIC
     Dosage: 200 MILLIGRAM
     Route: 041
     Dates: start: 20210107, end: 20210107
  4. RINDERON [Concomitant]
     Dosage: 2 MILLIGRAM
     Route: 041
     Dates: start: 20210105, end: 20210110
  5. CARBOPLATIN. [Suspect]
     Active Substance: CARBOPLATIN
     Indication: LUNG CANCER METASTATIC
     Dosage: 400 MILLIGRAM
     Route: 041
     Dates: start: 20210107, end: 20210117
  6. ABRAXANE [Suspect]
     Active Substance: PACLITAXEL
     Indication: LUNG CANCER METASTATIC
     Dosage: 100 MILLIGRAM
     Route: 041
     Dates: start: 20210107, end: 20210107
  7. RINDERON [Concomitant]
     Indication: LUNG CANCER METASTATIC
     Dosage: 4 MILLIGRAM
     Route: 041
     Dates: start: 20210102, end: 20210104
  8. FAMOTIDINE. [Concomitant]
     Active Substance: FAMOTIDINE
     Indication: LUNG CANCER METASTATIC
     Dosage: 20 MILLIGRAM
     Route: 041
     Dates: start: 20210102, end: 20210110

REACTIONS (3)
  - Lung neoplasm malignant [Fatal]
  - Pneumonia [Unknown]
  - Disseminated intravascular coagulation [Recovering/Resolving]

NARRATIVE: CASE EVENT DATE: 20210109
